FAERS Safety Report 25842964 (Version 1)
Quarter: 2025Q3

REPORT INFORMATION
  Report Type: Spontaneous
  Country: EU (occurrence: EU)
  Receive Date: 20250924
  Receipt Date: 20250924
  Transmission Date: 20251021
  Serious: Yes (Other)
  Sender: NOVARTIS
  Company Number: EU-002147023-NVSC2025ES147992

PATIENT
  Age: 65 Year
  Sex: Male

DRUGS (2)
  1. SCEMBLIX [Suspect]
     Active Substance: ASCIMINIB HYDROCHLORIDE
     Indication: Chronic myeloid leukaemia
     Dosage: 40 MG, Q12H
     Route: 065
     Dates: start: 20240315
  2. ASPIRIN [Concomitant]
     Active Substance: ASPIRIN
     Indication: Product used for unknown indication
     Dosage: 100 MG, Q24H
     Route: 065

REACTIONS (11)
  - Erectile dysfunction [Unknown]
  - Leukoencephalopathy [Unknown]
  - Atrial fibrillation [Unknown]
  - Cerebral atrophy [Unknown]
  - Cognitive disorder [Unknown]
  - Coronary artery stenosis [Unknown]
  - Cerebral artery stenosis [Unknown]
  - Fatigue [Recovering/Resolving]
  - Blood creatinine increased [Recovering/Resolving]
  - Blood glucose increased [Recovering/Resolving]
  - Obstructive sleep apnoea syndrome [Unknown]

NARRATIVE: CASE EVENT DATE: 20250513
